FAERS Safety Report 25068197 (Version 1)
Quarter: 2025Q1

REPORT INFORMATION
  Report Type: Spontaneous
  Country: US (occurrence: None)
  Receive Date: 20250312
  Receipt Date: 20250312
  Transmission Date: 20250408
  Serious: Yes (Hospitalization)
  Sender: FDA-CTU
  Company Number: None

PATIENT
  Age: 62 Year
  Sex: Male
  Weight: 95.3 kg

DRUGS (1)
  1. CISPLATIN [Suspect]
     Active Substance: CISPLATIN

REACTIONS (9)
  - Acute kidney injury [None]
  - Diarrhoea [None]
  - Hypotension [None]
  - Dizziness [None]
  - Hyperglycaemia [None]
  - Hypoxia [None]
  - Tachycardia [None]
  - Pneumonia aspiration [None]
  - Septic shock [None]

NARRATIVE: CASE EVENT DATE: 20250306
